FAERS Safety Report 6516672-1 (Version None)
Quarter: 2009Q4

REPORT INFORMATION
  Report Type: 
  Country: None (occurrence: None)
  Receive Date: 20091223
  Receipt Date: 20091217
  Transmission Date: 20100525
  Serious: Yes (Death)
  Sender: FDA-Public Use
  Company Number: US-CELGENEUS-163-21880-09121488

PATIENT
  Sex: Male

DRUGS (10)
  1. REVLIMID [Suspect]
     Indication: MULTIPLE MYELOMA
     Route: 048
     Dates: start: 20090901, end: 20090101
  2. REVLIMID [Suspect]
     Dosage: 10-25MG
     Route: 048
     Dates: start: 20070801, end: 20080101
  3. THALOMID [Suspect]
     Indication: MULTIPLE MYELOMA
     Route: 048
     Dates: start: 20091001, end: 20090101
  4. THALOMID [Suspect]
     Dosage: 150-350-400MG
     Route: 048
     Dates: start: 20010901
  5. THALOMID [Suspect]
     Route: 048
     Dates: start: 20020701
  6. THALOMID [Suspect]
     Dosage: 50-150MG
     Route: 048
     Dates: start: 20021001
  7. THALOMID [Suspect]
     Dosage: 200-100MG
     Route: 048
     Dates: start: 20030301
  8. THALOMID [Suspect]
     Route: 048
     Dates: start: 20030801
  9. THALOMID [Suspect]
     Dosage: 100-50-200MG
     Route: 048
     Dates: start: 20031201
  10. THALOMID [Suspect]
     Dosage: 50-150-100MG
     Route: 048
     Dates: start: 20041001

REACTIONS (1)
  - DEATH [None]
